FAERS Safety Report 24624312 (Version 1)
Quarter: 2024Q4

REPORT INFORMATION
  Report Type: Spontaneous
  Country: US (occurrence: US)
  Receive Date: 20241115
  Receipt Date: 20241115
  Transmission Date: 20250115
  Serious: Yes (Other)
  Sender: AMERICAN REGENT
  Company Number: US-AMERICAN REGENT INC-2023001915

PATIENT
  Sex: Female

DRUGS (2)
  1. FERRIC CARBOXYMALTOSE [Suspect]
     Active Substance: FERRIC CARBOXYMALTOSE
     Indication: Serum ferritin decreased
     Dosage: UNK, SINGLE
     Route: 065
     Dates: start: 20230523, end: 20230523
  2. FERRIC CARBOXYMALTOSE [Suspect]
     Active Substance: FERRIC CARBOXYMALTOSE
     Indication: Anaemia
     Dosage: UNK, SINGLE
     Route: 065
     Dates: start: 20230601, end: 20230601

REACTIONS (2)
  - Mobility decreased [Unknown]
  - Ill-defined disorder [Unknown]
